FAERS Safety Report 18833306 (Version 1)
Quarter: 2021Q1

REPORT INFORMATION
  Report Type: Spontaneous
  Country: JP (occurrence: JP)
  Receive Date: 20210203
  Receipt Date: 20210203
  Transmission Date: 20210419
  Serious: Yes (Death, Hospitalization, Other)
  Sender: FDA-Public Use
  Company Number: JP-ROCHE-2762697

PATIENT
  Age: 68 Year
  Sex: Male
  Weight: 74 kg

DRUGS (6)
  1. AVASTIN [Suspect]
     Active Substance: BEVACIZUMAB
     Indication: HEPATOCELLULAR CARCINOMA
     Route: 041
     Dates: start: 20201117, end: 20201117
  2. THYRADIN?S [Concomitant]
     Active Substance: LEVOTHYROXINE
     Dosage: DOSAGE IS UNCERTAIN.
     Route: 065
     Dates: start: 20191224
  3. TECENTRIQ [Suspect]
     Active Substance: ATEZOLIZUMAB
     Indication: HEPATOCELLULAR CARCINOMA
     Route: 041
     Dates: start: 20201117, end: 20201117
  4. CELLCEPT [Concomitant]
     Active Substance: MYCOPHENOLATE MOFETIL\MYCOPHENOLATE MOFETIL HYDROCHLORIDE
     Route: 065
     Dates: start: 20201006
  5. TAKECAB [Concomitant]
     Active Substance: VONOPRAZAN FUMARATE
     Route: 065
     Dates: start: 20190510
  6. CERTICAN [Concomitant]
     Active Substance: EVEROLIMUS
     Route: 065
     Dates: start: 20191227

REACTIONS (4)
  - Disease progression [Fatal]
  - Hyperbilirubinaemia [Unknown]
  - Intestinal haematoma [Unknown]
  - Vascular anastomotic haemorrhage [Recovered/Resolved]

NARRATIVE: CASE EVENT DATE: 20201120
